FAERS Safety Report 4582903-0 (Version None)
Quarter: 2005Q1

REPORT INFORMATION
  Report Type: 
  Country: None (occurrence: None)
  Receive Date: 20050127
  Receipt Date: 20040915
  Transmission Date: 20050727
  Serious: No
  Sender: FDA-Public Use
  Company Number: USA040978244

PATIENT
  Age: 6 Year
  Sex: Male
  Weight: 28 kg

DRUGS (2)
  1. STRATTERA [Suspect]
     Indication: ATTENTION DEFICIT/HYPERACTIVITY DISORDER
     Dosage: 25 MG/1 IN THE EVENING
     Dates: start: 20040801
  2. BENADRYL [Concomitant]

REACTIONS (4)
  - CRYING [None]
  - FATIGUE [None]
  - MOOD SWINGS [None]
  - SLUGGISHNESS [None]
